FAERS Safety Report 6414658-9 (Version None)
Quarter: 2009Q4

REPORT INFORMATION
  Report Type: 
  Country: None (occurrence: None)
  Receive Date: 20091026
  Receipt Date: 20091021
  Transmission Date: 20100525
  Serious: Yes (Death, Hospitalization, Other)
  Sender: FDA-Public Use
  Company Number: FR-GILEAD-2009-0024552

PATIENT
  Sex: Male
  Weight: 52.5 kg

DRUGS (13)
  1. TRUVADA [Suspect]
     Indication: HIV INFECTION
     Route: 048
     Dates: start: 20090513
  2. TIAPRIDAL [Suspect]
     Indication: LOGORRHOEA
     Route: 048
     Dates: start: 20090710
  3. KALETRA [Concomitant]
     Indication: HIV INFECTION
     Route: 048
     Dates: start: 20090513
  4. NEORAL [Concomitant]
     Indication: TRANSPLANT
     Dates: start: 20090503
  5. NEORAL [Concomitant]
     Dates: start: 20090710
  6. CELLCEPT [Concomitant]
     Indication: TRANSPLANT
     Route: 048
     Dates: start: 20090503
  7. PYOSTACINE [Concomitant]
     Indication: ANTIBIOTIC THERAPY
     Route: 048
     Dates: start: 20090706
  8. ZELITREX [Concomitant]
     Indication: PROPHYLAXIS
     Route: 048
     Dates: start: 20090503
  9. INIPOMP [Concomitant]
     Route: 048
     Dates: start: 20090503
  10. CORTANCYL [Concomitant]
     Indication: TRANSPLANT
     Route: 048
     Dates: start: 20090503
  11. ASPEGIC 1000 [Concomitant]
     Indication: ANTICOAGULANT THERAPY
     Route: 048
     Dates: start: 20090613
  12. LEXOMIL [Concomitant]
     Route: 048
     Dates: start: 20090706
  13. SUBUTEX [Concomitant]

REACTIONS (4)
  - ANURIA [None]
  - CARDIOGENIC SHOCK [None]
  - LACTIC ACIDOSIS [None]
  - RENAL FAILURE [None]
